FAERS Safety Report 4775457-7 (Version None)
Quarter: 2005Q3

REPORT INFORMATION
  Report Type: 
  Country: None (occurrence: None)
  Receive Date: 20050921
  Receipt Date: 20050921
  Transmission Date: 20060218
  Serious: Yes (Other)
  Sender: FDA-Public Use
  Company Number: None

PATIENT
  Sex: Male
  Weight: 82 kg

DRUGS (1)
  1. OXALIPLATIN [Suspect]
     Indication: COLON CANCER
     Dosage: 30MG/M2 Q2WEEKS IV DRIP
     Route: 041
     Dates: start: 20050308, end: 20050717

REACTIONS (2)
  - INFUSION RELATED REACTION [None]
  - PRURITUS [None]
